FAERS Safety Report 13855227 (Version 1)
Quarter: 2017Q3

REPORT INFORMATION
  Report Type: Spontaneous
  Country: AU (occurrence: AU)
  Receive Date: 20170810
  Receipt Date: 20170810
  Transmission Date: 20171127
  Serious: Yes (Other)
  Sender: FDA-Public Use
  Company Number: AU-BAYER-2017-149722

PATIENT
  Age: 53 Year
  Sex: Female

DRUGS (1)
  1. ULTRAVIST [Suspect]
     Active Substance: IOPROMIDE
     Dosage: UNK UNK, ONCE
     Dates: start: 20170801, end: 20170801

REACTIONS (5)
  - Dysphagia [None]
  - Influenza [None]
  - Anaphylactic reaction [None]
  - Malaise [None]
  - Trichoglossia [None]

NARRATIVE: CASE EVENT DATE: 20170801
